FAERS Safety Report 23888787 (Version 10)
Quarter: 2025Q1

REPORT INFORMATION
  Report Type: Report from Study
  Country: CA (occurrence: CA)
  Receive Date: 20240523
  Receipt Date: 20250307
  Transmission Date: 20250408
  Serious: Yes (Other)
  Sender: TAKEDA
  Company Number: CA-TAKEDA-2024TUS036612

PATIENT
  Age: 63 Year
  Sex: Female

DRUGS (9)
  1. VEDOLIZUMAB [Suspect]
     Active Substance: VEDOLIZUMAB
     Indication: Colitis ulcerative
  2. VEDOLIZUMAB [Suspect]
     Active Substance: VEDOLIZUMAB
  3. VEDOLIZUMAB [Suspect]
     Active Substance: VEDOLIZUMAB
  4. VEDOLIZUMAB [Suspect]
     Active Substance: VEDOLIZUMAB
     Dosage: 300 MILLIGRAM, Q4WEEKS
     Dates: start: 20241030
  5. VEDOLIZUMAB [Suspect]
     Active Substance: VEDOLIZUMAB
     Dosage: 300 MILLIGRAM, Q4WEEKS
     Dates: end: 20250102
  6. PREDNISONE [Concomitant]
     Active Substance: PREDNISONE
  7. POLYETHYLENE GLYCOL 3350 [Concomitant]
     Active Substance: POLYETHYLENE GLYCOL 3350
  8. Reactine [Concomitant]
  9. ENTOCORT [Concomitant]
     Active Substance: BUDESONIDE

REACTIONS (20)
  - Colitis ulcerative [Not Recovered/Not Resolved]
  - Eye swelling [Recovering/Resolving]
  - Burning sensation [Recovering/Resolving]
  - Rash erythematous [Recovering/Resolving]
  - Paraesthesia [Recovering/Resolving]
  - Pruritus [Recovering/Resolving]
  - Proctalgia [Not Recovered/Not Resolved]
  - Abdominal pain [Not Recovered/Not Resolved]
  - Diarrhoea [Not Recovered/Not Resolved]
  - Frequent bowel movements [Not Recovered/Not Resolved]
  - Feeling hot [Unknown]
  - Swelling of eyelid [Unknown]
  - Off label use [Unknown]
  - Hypoaesthesia oral [Unknown]
  - Facial discomfort [Unknown]
  - Eye paraesthesia [Unknown]
  - Faeces soft [Not Recovered/Not Resolved]
  - Periorbital swelling [Unknown]
  - Drug ineffective [Unknown]
  - Erythema [Unknown]

NARRATIVE: CASE EVENT DATE: 20240407
